FAERS Safety Report 20601503 (Version 21)
Quarter: 2022Q4

REPORT INFORMATION
  Report Type: Spontaneous
  Country: FR (occurrence: FR)
  Receive Date: 20220316
  Receipt Date: 20221220
  Transmission Date: 20230112
  Serious: Yes (Hospitalization, Other)
  Sender: FDA-Public Use
  Company Number: None

PATIENT
  Age: 76 Year
  Sex: Female
  Weight: 79 kg

DRUGS (28)
  1. KEPPRA [Suspect]
     Active Substance: LEVETIRACETAM
     Indication: Metastases to central nervous system
     Dosage: 750 MILLIGRAM, 2X/DAY (BID)
     Route: 042
     Dates: start: 20211026
  2. KEPPRA [Suspect]
     Active Substance: LEVETIRACETAM
     Indication: Epilepsy
     Dosage: 750 MILLIGRAM UNK
     Route: 042
     Dates: start: 20211230
  3. KEPPRA [Suspect]
     Active Substance: LEVETIRACETAM
     Indication: Off label use
  4. SACITUZUMAB GOVITECAN [Suspect]
     Active Substance: SACITUZUMAB GOVITECAN
     Indication: Triple negative breast cancer
     Dosage: 9.75 MILLIGRAM/KILOGRAM (C1D1 AND C1D8)
     Route: 042
     Dates: start: 20211209, end: 20211216
  5. SACITUZUMAB GOVITECAN [Suspect]
     Active Substance: SACITUZUMAB GOVITECAN
     Dosage: 9.75 MILLIGRAM/KILOGRAM (C2D1 AND C2D8)
     Route: 042
     Dates: start: 20211230, end: 20220106
  6. SACITUZUMAB GOVITECAN [Suspect]
     Active Substance: SACITUZUMAB GOVITECAN
     Dosage: 7.9 MILLIGRAM/KILOGRAM (C3D1 AND C3D8)
     Route: 042
     Dates: start: 20220120, end: 20220127
  7. SACITUZUMAB GOVITECAN [Suspect]
     Active Substance: SACITUZUMAB GOVITECAN
     Dosage: 7.9 MILLIGRAM/KILOGRAM (C4D1 AND C4D8)
     Route: 042
     Dates: start: 20220210, end: 20220217
  8. SACITUZUMAB GOVITECAN [Suspect]
     Active Substance: SACITUZUMAB GOVITECAN
     Dosage: 10 MILLIGRAM/KILOGRAM (C5D1 AND C5D8)
     Route: 042
     Dates: start: 20220303, end: 20220310
  9. SACITUZUMAB GOVITECAN [Suspect]
     Active Substance: SACITUZUMAB GOVITECAN
     Dosage: 7.8 MILLIGRAM/KILOGRAM (C6D1 AND C6D8)
     Route: 042
     Dates: start: 20220324, end: 20220331
  10. SACITUZUMAB GOVITECAN [Suspect]
     Active Substance: SACITUZUMAB GOVITECAN
     Dosage: 7.9 MILLIGRAM/KILOGRAM (C7D1 AND C7D8)
     Route: 042
     Dates: start: 20220414, end: 20220421
  11. SACITUZUMAB GOVITECAN [Suspect]
     Active Substance: SACITUZUMAB GOVITECAN
     Dosage: 7.9 MILLIGRAM/KILOGRAM (C8D1 AND C8D8)
     Route: 042
     Dates: start: 20220505, end: 20220512
  12. SACITUZUMAB GOVITECAN [Suspect]
     Active Substance: SACITUZUMAB GOVITECAN
     Dosage: 7.692 MILLIGRAM/KILOGRAM (C9D1 AND C9D8)
     Route: 042
     Dates: start: 20220602, end: 20220624
  13. SACITUZUMAB GOVITECAN [Suspect]
     Active Substance: SACITUZUMAB GOVITECAN
     Dosage: 7.7 MILLIGRAM/KILOGRAM (C11 D1-D8)
     Route: 042
     Dates: start: 20220715, end: 20220722
  14. SACITUZUMAB GOVITECAN [Suspect]
     Active Substance: SACITUZUMAB GOVITECAN
     Dosage: 7.7 MILLIGRAM/KILOGRAM (C10 D1 (D8 NOT DONE))
     Route: 042
     Dates: start: 20220624, end: 20220630
  15. SACITUZUMAB GOVITECAN [Suspect]
     Active Substance: SACITUZUMAB GOVITECAN
     Dosage: 7.7 MILLIGRAM/KILOGRAM (C12D1 AND C12D8)
     Route: 042
     Dates: start: 20220804, end: 20220811
  16. SACITUZUMAB GOVITECAN [Suspect]
     Active Substance: SACITUZUMAB GOVITECAN
     Dosage: 7.7 MILLIGRAM/KILOGRAM (C13D1 AND C13D8)
     Route: 042
     Dates: start: 20220826, end: 20220902
  17. SACITUZUMAB GOVITECAN [Suspect]
     Active Substance: SACITUZUMAB GOVITECAN
     Dosage: 7.7 MILLIGRAM/KILOGRAM (C14D1 D8)
     Route: 042
     Dates: start: 20220923, end: 20220930
  18. SACITUZUMAB GOVITECAN [Suspect]
     Active Substance: SACITUZUMAB GOVITECAN
     Dosage: 7.7 MILLIGRAM/KILOGRAM (C15D1 AND C15D8)
     Route: 042
     Dates: start: 20221014, end: 20221021
  19. SACITUZUMAB GOVITECAN [Suspect]
     Active Substance: SACITUZUMAB GOVITECAN
     Dosage: 7.7 MILLIGRAM/KILOGRAM (C16D1)
     Route: 042
     Dates: start: 20221104, end: 20221104
  20. SACITUZUMAB GOVITECAN [Suspect]
     Active Substance: SACITUZUMAB GOVITECAN
     Dosage: 600 MILLIGRAM
     Route: 042
     Dates: start: 20221110, end: 20221110
  21. AUGMENTIN [Concomitant]
     Active Substance: AMOXICILLIN\CLAVULANATE POTASSIUM
     Indication: Product used for unknown indication
     Dosage: UNK
     Dates: start: 20220104
  22. IMOVANE [Concomitant]
     Active Substance: ZOPICLONE
     Indication: Insomnia
     Dosage: UNK
     Dates: start: 20211104
  23. PANTOPRAZOLE [Concomitant]
     Active Substance: PANTOPRAZOLE
     Indication: Abdominal pain upper
     Dosage: UNK
     Dates: start: 20191121
  24. ACETAMINOPHEN [Concomitant]
     Active Substance: ACETAMINOPHEN
     Indication: Pain
     Dosage: UNK
     Dates: start: 20211230
  25. PREDNISOLONE [Concomitant]
     Active Substance: PREDNISOLONE
     Indication: Metastases to central nervous system
     Dosage: UNK
     Dates: start: 20211216
  26. METHYLPREDNISOLONE [Concomitant]
     Active Substance: METHYLPREDNISOLONE
     Indication: Metastases to central nervous system
     Dosage: UNK
     Dates: start: 20211118
  27. METHYLPREDNISOLONE [Concomitant]
     Active Substance: METHYLPREDNISOLONE
     Dosage: UNK
     Dates: start: 20220127
  28. SUPROFEN [Concomitant]
     Active Substance: SUPROFEN
     Indication: Pain
     Dosage: UNK
     Dates: start: 20210617

REACTIONS (28)
  - Lung disorder [Recovered/Resolved]
  - Asthenia [Not Recovered/Not Resolved]
  - Febrile neutropenia [Recovered/Resolved]
  - General physical condition abnormal [Recovered/Resolved]
  - Hyperthermia [Recovered/Resolved]
  - Pyrexia [Recovered/Resolved]
  - Balance disorder [Recovered/Resolved]
  - Diarrhoea [Not Recovered/Not Resolved]
  - Epilepsy [Recovered/Resolved]
  - Fall [Not Recovered/Not Resolved]
  - Seizure [Recovered/Resolved]
  - Aggression [Unknown]
  - Alopecia [Not Recovered/Not Resolved]
  - Anxiety [Unknown]
  - Bleeding varicose vein [Not Recovered/Not Resolved]
  - Depression [Unknown]
  - Eyelid ptosis [Recovered/Resolved]
  - Haematoma [Not Recovered/Not Resolved]
  - Hypoaesthesia [Recovered/Resolved]
  - Memory impairment [Not Recovered/Not Resolved]
  - Pain in extremity [Not Recovered/Not Resolved]
  - Varicose ulceration [Not Recovered/Not Resolved]
  - Inappropriate schedule of product administration [Unknown]
  - Incorrect dose administered [Unknown]
  - Intentional dose omission [Unknown]
  - Off label use [Unknown]
  - Product use issue [Not Recovered/Not Resolved]
  - Headache [Not Recovered/Not Resolved]

NARRATIVE: CASE EVENT DATE: 20211209
